FAERS Safety Report 4288806-3 (Version None)
Quarter: 2004Q1

REPORT INFORMATION
  Report Type: 
  Country: None (occurrence: None)
  Receive Date: 20040206
  Receipt Date: 20040203
  Transmission Date: 20041129
  Serious: Yes (Other)
  Sender: FDA-Public Use
  Company Number: US011693

PATIENT
  Age: 44 Year
  Sex: Female
  Weight: 61.3 kg

DRUGS (7)
  1. EPOGEN [Suspect]
     Indication: DIALYSIS
     Dosage: 120000 U, 3 TIMES/WK, SC
     Route: 058
     Dates: start: 19990101
  2. BLOOD CELLS, PACKED HUMAN [Concomitant]
  3. NEPHRO-VITE [Concomitant]
  4. SEVELAMER HCL [Concomitant]
  5. FERROUS SULFATE TAB [Concomitant]
  6. POTASSIUM CHLORIDE [Concomitant]
  7. DOXERCALCEROL [Concomitant]

REACTIONS (6)
  - ANTI-ERYTHROPOIETIN ANTIBODY POSITIVE [None]
  - APLASIA PURE RED CELL [None]
  - BLOOD PARATHYROID HORMONE DECREASED [None]
  - DYSFUNCTIONAL UTERINE BLEEDING [None]
  - PERITONITIS [None]
  - STAPHYLOCOCCAL INFECTION [None]
